FAERS Safety Report 10103592 (Version 4)
Quarter: 2014Q2

REPORT INFORMATION
  Report Type: Spontaneous
  Country: US (occurrence: US)
  Receive Date: 20140424
  Receipt Date: 20140530
  Transmission Date: 20141212
  Serious: Yes (Other)
  Sender: FDA-Public Use
  Company Number: CHPA2014US005571

PATIENT
  Age: 74 Year
  Sex: Male

DRUGS (2)
  1. EX-LAX REG STR CHOCOLATED LAX PCS SEN [Suspect]
     Indication: CONSTIPATION
     Dosage: 2 DF, BID
     Route: 048
  2. EX-LAX REG STR CHOCOLATED LAX PCS SEN [Suspect]
     Dosage: 2 DF, BID
     Route: 048
     Dates: start: 20140416, end: 20140417

REACTIONS (2)
  - Neoplasm [Recovered/Resolved]
  - Drug ineffective [Unknown]
